FAERS Safety Report 11007080 (Version 2)
Quarter: 2016Q2

REPORT INFORMATION
  Report Type: Spontaneous
  Country: US (occurrence: US)
  Receive Date: 20150409
  Receipt Date: 20160415
  Transmission Date: 20160815
  Serious: No
  Sender: FDA-Public Use
  Company Number: US-ALLERGAN-1502426US

PATIENT
  Age: 55 Year
  Sex: Female

DRUGS (2)
  1. LATISSE [Suspect]
     Active Substance: BIMATOPROST
     Indication: GROWTH OF EYELASHES
     Dosage: 5 ML, QD
     Dates: start: 20141022
  2. LATISSE [Suspect]
     Active Substance: BIMATOPROST
     Dosage: 5 UNK, UNK
     Dates: start: 201412, end: 201412

REACTIONS (6)
  - Dry eye [Unknown]
  - Incorrect dose administered [Unknown]
  - Eyelid skin dryness [Recovered/Resolved]
  - Erythema [Recovered/Resolved]
  - Pruritus [Recovered/Resolved]
  - Ocular hyperaemia [Unknown]

NARRATIVE: CASE EVENT DATE: 201412
